FAERS Safety Report 12470860 (Version 1)
Quarter: 2016Q2

REPORT INFORMATION
  Report Type: Spontaneous
  Country: US (occurrence: None)
  Receive Date: 20160615
  Receipt Date: 20160615
  Transmission Date: 20160815
  Serious: Yes (Life-Threatening, Hospitalization, Other)
  Sender: FDA-Public Use
  Company Number: None

PATIENT
  Age: 31 Year
  Sex: Female
  Weight: 57.61 kg

DRUGS (11)
  1. ADVIL [Concomitant]
     Active Substance: IBUPROFEN
  2. OMEPRAZOLE. [Suspect]
     Active Substance: OMEPRAZOLE
  3. CLARITIN [Concomitant]
     Active Substance: LORATADINE
  4. MINASTRIN 24 FE [Concomitant]
     Active Substance: ETHINYL ESTRADIOL\NORETHINDRONE ACETATE
  5. TRAMADOL. [Concomitant]
     Active Substance: TRAMADOL
  6. PROFFERIN ES [Concomitant]
  7. SMZ-TMP DS TAB, 800 MG AUROBINDO PHARM [Suspect]
     Active Substance: SULFAMETHOXAZOLE\TRIMETHOPRIM
     Indication: CELLULITIS
     Dosage: 14 TABLET(S) TWICE A DAY TAKEN BY MOUTH
     Route: 048
     Dates: start: 20160528, end: 20160602
  8. AMBIEN [Concomitant]
     Active Substance: ZOLPIDEM TARTRATE
  9. TIZANIDINE. [Concomitant]
     Active Substance: TIZANIDINE
  10. VALIUM [Concomitant]
     Active Substance: DIAZEPAM
  11. RHINOCORT [Concomitant]
     Active Substance: BUDESONIDE

REACTIONS (9)
  - Skin exfoliation [None]
  - Stevens-Johnson syndrome [None]
  - Urticaria [None]
  - Asthenia [None]
  - Heart rate increased [None]
  - Lethargy [None]
  - Depression [None]
  - Abdominal discomfort [None]
  - Skin burning sensation [None]

NARRATIVE: CASE EVENT DATE: 20160603
